FAERS Safety Report 7598472-7 (Version None)
Quarter: 2011Q3

REPORT INFORMATION
  Report Type: 
  Country: None (occurrence: None)
  Receive Date: 20110708
  Receipt Date: 20110629
  Transmission Date: 20111222
  Serious: Yes (Other)
  Sender: FDA-Public Use
  Company Number: TR-ELI_LILLY_AND_COMPANY-TR201104008190

PATIENT
  Sex: Female
  Weight: 82 kg

DRUGS (2)
  1. GEMZAR [Suspect]
     Indication: BREAST CANCER METASTATIC
     Dosage: 1400 MG/M2, UNKNOWN
     Route: 040
     Dates: start: 20110310
  2. CISPLATIN [Concomitant]
     Indication: BREAST CANCER METASTATIC
     Dosage: 50 MG/M2, UNKNOWN
     Route: 040
     Dates: start: 20110310

REACTIONS (1)
  - PAIN [None]
